FAERS Safety Report 25352421 (Version 1)
Quarter: 2025Q2

REPORT INFORMATION
  Report Type: Spontaneous
  Country: FR (occurrence: FR)
  Receive Date: 20250523
  Receipt Date: 20250523
  Transmission Date: 20250717
  Serious: Yes (Hospitalization, Other)
  Sender: MYLAN
  Company Number: FR-MYLANLABS-2025M1042917

PATIENT
  Age: 6 Decade
  Sex: Female

DRUGS (3)
  1. METHOTREXATE [Suspect]
     Active Substance: METHOTREXATE
     Indication: Rosai-Dorfman syndrome
     Dosage: 15 MILLIGRAM, QW
  2. LENALIDOMIDE [Suspect]
     Active Substance: LENALIDOMIDE
     Indication: Rosai-Dorfman syndrome
     Dosage: 25 MILLIGRAM, QD (ON DAY 1 TO DAY 21 (28 DAY CYCLES)
     Dates: start: 202103
  3. LENALIDOMIDE [Suspect]
     Active Substance: LENALIDOMIDE

REACTIONS (5)
  - Diarrhoea [Unknown]
  - Thrombocytopenia [Unknown]
  - Anaemia [Unknown]
  - Drug ineffective for unapproved indication [Unknown]
  - Off label use [Unknown]

NARRATIVE: CASE EVENT DATE: 20210101
